FAERS Safety Report 13072535 (Version 1)
Quarter: 2016Q4

REPORT INFORMATION
  Report Type: Spontaneous
  Country: US (occurrence: US)
  Receive Date: 20161229
  Receipt Date: 20161229
  Transmission Date: 20170207
  Serious: No
  Sender: FDA-Public Use
  Company Number: US-ELI_LILLY_AND_COMPANY-US201611004029

PATIENT
  Sex: Female

DRUGS (5)
  1. TALTZ [Suspect]
     Active Substance: IXEKIZUMAB
     Dosage: 80 MG, UNKNOWN
     Route: 058
     Dates: start: 20161109
  2. METFORMIN [Concomitant]
     Active Substance: METFORMIN HYDROCHLORIDE
  3. PROZAC [Concomitant]
     Active Substance: FLUOXETINE HYDROCHLORIDE
  4. TALTZ [Suspect]
     Active Substance: IXEKIZUMAB
     Indication: PSORIASIS
     Dosage: 160 MG, SINGLE
     Route: 058
     Dates: start: 201611
  5. KLONOPIN [Concomitant]
     Active Substance: CLONAZEPAM

REACTIONS (4)
  - Injection site warmth [Not Recovered/Not Resolved]
  - Injection site pruritus [Recovered/Resolved]
  - Injection site swelling [Unknown]
  - Injection site erythema [Not Recovered/Not Resolved]

NARRATIVE: CASE EVENT DATE: 20161108
